FAERS Safety Report 20204176 (Version 5)
Quarter: 2022Q2

REPORT INFORMATION
  Report Type: Report from Study
  Country: US (occurrence: US)
  Receive Date: 20211220
  Receipt Date: 20220525
  Transmission Date: 20220721
  Serious: Yes (Hospitalization, Other)
  Sender: FDA-Public Use
  Company Number: US-TAKEDA-US202013548

PATIENT
  Age: 67 Year
  Sex: Female

DRUGS (16)
  1. TEDUGLUTIDE [Suspect]
     Active Substance: TEDUGLUTIDE
     Indication: Short-bowel syndrome
     Dosage: 1.21 MILLIGRAM, QD
     Route: 058
     Dates: start: 20200319
  2. TEDUGLUTIDE [Suspect]
     Active Substance: TEDUGLUTIDE
     Indication: Short-bowel syndrome
     Dosage: 1.21 MILLIGRAM, QD
     Route: 058
     Dates: start: 20200319
  3. TEDUGLUTIDE [Suspect]
     Active Substance: TEDUGLUTIDE
     Indication: Short-bowel syndrome
     Dosage: 1.21 MILLIGRAM, QD
     Route: 058
     Dates: start: 20200319
  4. TEDUGLUTIDE [Suspect]
     Active Substance: TEDUGLUTIDE
     Indication: Short-bowel syndrome
     Dosage: 1.21 MILLIGRAM, QD
     Route: 058
     Dates: start: 20200319
  5. TEDUGLUTIDE [Suspect]
     Active Substance: TEDUGLUTIDE
     Indication: Malnutrition
     Dosage: 1.2 MILLIGRAM, QD
     Route: 058
     Dates: start: 20201023
  6. TEDUGLUTIDE [Suspect]
     Active Substance: TEDUGLUTIDE
     Indication: Malnutrition
     Dosage: 1.2 MILLIGRAM, QD
     Route: 058
     Dates: start: 20201023
  7. TEDUGLUTIDE [Suspect]
     Active Substance: TEDUGLUTIDE
     Indication: Malnutrition
     Dosage: 1.2 MILLIGRAM, QD
     Route: 058
     Dates: start: 20201023
  8. TEDUGLUTIDE [Suspect]
     Active Substance: TEDUGLUTIDE
     Indication: Malnutrition
     Dosage: 1.2 MILLIGRAM, QD
     Route: 058
     Dates: start: 20201023
  9. TEDUGLUTIDE [Suspect]
     Active Substance: TEDUGLUTIDE
     Indication: Crohn^s disease
     Dosage: 1.21 MILLIGRAM, QD
     Route: 058
     Dates: start: 20211102
  10. TEDUGLUTIDE [Suspect]
     Active Substance: TEDUGLUTIDE
     Indication: Crohn^s disease
     Dosage: 1.21 MILLIGRAM, QD
     Route: 058
     Dates: start: 20211102
  11. TEDUGLUTIDE [Suspect]
     Active Substance: TEDUGLUTIDE
     Indication: Crohn^s disease
     Dosage: 1.21 MILLIGRAM, QD
     Route: 058
     Dates: start: 20211102
  12. TEDUGLUTIDE [Suspect]
     Active Substance: TEDUGLUTIDE
     Indication: Crohn^s disease
     Dosage: 1.21 MILLIGRAM, QD
     Route: 058
     Dates: start: 20211102
  13. TEDUGLUTIDE [Suspect]
     Active Substance: TEDUGLUTIDE
     Dosage: 1.21 MILLIGRAM, QD
     Route: 058
     Dates: start: 20211217
  14. TEDUGLUTIDE [Suspect]
     Active Substance: TEDUGLUTIDE
     Dosage: 1.21 MILLIGRAM, QD
     Route: 058
     Dates: start: 20211217
  15. TEDUGLUTIDE [Suspect]
     Active Substance: TEDUGLUTIDE
     Dosage: 1.21 MILLIGRAM, QD
     Route: 058
     Dates: start: 20211217
  16. TEDUGLUTIDE [Suspect]
     Active Substance: TEDUGLUTIDE
     Dosage: 1.21 MILLIGRAM, QD
     Route: 058
     Dates: start: 20211217

REACTIONS (6)
  - Vascular device infection [Unknown]
  - Ketoacidosis [Unknown]
  - Intestinal obstruction [Unknown]
  - Flank pain [Unknown]
  - Culture positive [Unknown]
  - Product dose omission issue [Unknown]

NARRATIVE: CASE EVENT DATE: 20200321
